FAERS Safety Report 5827315-4 (Version None)
Quarter: 2008Q3

REPORT INFORMATION
  Report Type: 
  Country: None (occurrence: None)
  Receive Date: 20080724
  Receipt Date: 20080714
  Transmission Date: 20090109
  Serious: Yes (Hospitalization)
  Sender: FDA-Public Use
  Company Number: 1-16423301/MED-08139

PATIENT
  Sex: Female

DRUGS (1)
  1. KETOCONAZOLE [Suspect]
     Indication: ONYCHOMYCOSIS
     Dosage: 200 MG PER DAY, ORAL
     Route: 048

REACTIONS (1)
  - HEPATITIS [None]
